FAERS Safety Report 24794013 (Version 3)
Quarter: 2025Q1

REPORT INFORMATION
  Report Type: Spontaneous
  Country: US (occurrence: US)
  Receive Date: 20241231
  Receipt Date: 20250211
  Transmission Date: 20250408
  Serious: Yes (Life-Threatening, Hospitalization, Other)
  Sender: BRISTOL-MYERS SQUIBB COMPANY
  Company Number: US-BRISTOL-MYERS SQUIBB COMPANY-2024-200537

PATIENT
  Age: 89 Year
  Sex: Male
  Weight: 68.04 kg

DRUGS (42)
  1. ELIQUIS [Suspect]
     Active Substance: APIXABAN
     Indication: Atrial fibrillation
     Route: 048
     Dates: start: 20240613, end: 20241212
  2. VYNDAMAX [Suspect]
     Active Substance: TAFAMIDIS
     Indication: Cardiac amyloidosis
     Route: 048
     Dates: start: 2023, end: 202412
  3. VYNDAMAX [Suspect]
     Active Substance: TAFAMIDIS
     Route: 048
     Dates: start: 2023, end: 202412
  4. VYNDAMAX [Suspect]
     Active Substance: TAFAMIDIS
     Route: 048
  5. SPIRONOLACTONE [Concomitant]
     Active Substance: SPIRONOLACTONE
     Indication: Cardiac failure congestive
     Dosage: TUESDAY, THURSDAY, SATURDAY
  6. SPIRONOLACTONE [Concomitant]
     Active Substance: SPIRONOLACTONE
     Indication: Oedema
  7. TAMSULOSIN [Concomitant]
     Active Substance: TAMSULOSIN
     Indication: Benign prostatic hyperplasia
  8. XARELTO [Concomitant]
     Active Substance: RIVAROXABAN
     Indication: Product used for unknown indication
  9. FEBUXOSTAT [Concomitant]
     Active Substance: FEBUXOSTAT
     Indication: Rheumatoid arthritis
  10. FEBUXOSTAT [Concomitant]
     Active Substance: FEBUXOSTAT
     Indication: Gout
  11. PREDNISONE [Concomitant]
     Active Substance: PREDNISONE
     Indication: Giant cell arteritis
     Dosage: SLOW TAPER
  12. PREDNISONE [Concomitant]
     Active Substance: PREDNISONE
     Indication: Rheumatoid arthritis
  13. PREDNISONE [Concomitant]
     Active Substance: PREDNISONE
     Indication: Polymyalgia rheumatica
  14. CINNAMON\HERBALS [Concomitant]
     Active Substance: CINNAMON\HERBALS
     Indication: Supplementation therapy
  15. ASCORBIC ACID\CRANBERRY [Concomitant]
     Active Substance: ASCORBIC ACID\CRANBERRY
     Indication: Supplementation therapy
     Route: 048
  16. DICLOFENAC [Concomitant]
     Active Substance: DICLOFENAC
     Indication: Pain
     Route: 061
  17. LUTEINE [XANTOFYL;ZEAXANTHIN] [Concomitant]
     Indication: Eye disorder
  18. AZELASTINE [Concomitant]
     Active Substance: AZELASTINE
     Indication: Dry eye
     Dosage: ONE DROP BOTH EYES DAILY, 18 ML/DROP 2 TIMES DAILY
     Route: 047
  19. MUCINEX [Concomitant]
     Active Substance: GUAIFENESIN
     Indication: Nasal congestion
  20. ALBUTEROL [Concomitant]
     Active Substance: ALBUTEROL
     Indication: Chronic obstructive pulmonary disease
     Dosage: 2.5MG/3ML NEBULIZER, 2 PUFFS EVERY 4 HOURS/PRN
  21. ALBUTEROL [Concomitant]
     Active Substance: ALBUTEROL
     Indication: Dyspnoea
     Dosage: 2 PUFFS EVERY 4 HOURS/PRN
  22. ALBUTEROL [Concomitant]
     Active Substance: ALBUTEROL
     Indication: Wheezing
  23. VITAMIN D3 [Concomitant]
     Active Substance: CHOLECALCIFEROL
     Indication: Supplementation therapy
  24. METOLAZONE [Concomitant]
     Active Substance: METOLAZONE
     Indication: Cardiac failure congestive
  25. METOLAZONE [Concomitant]
     Active Substance: METOLAZONE
     Indication: Oedema
  26. POTASSIUM [Concomitant]
     Active Substance: POTASSIUM
     Indication: Hypokalaemia
  27. BREON [Concomitant]
     Indication: Dyspnoea
     Dosage: 100-25 MG
  28. BREON [Concomitant]
     Indication: Chronic obstructive pulmonary disease
  29. VITAMIN B1 [Concomitant]
     Active Substance: THIAMINE HYDROCHLORIDE
     Indication: Supplementation therapy
  30. ACETAMINOPHEN [Concomitant]
     Active Substance: ACETAMINOPHEN
     Indication: Pain
  31. CYANOCOBALAMIN [Concomitant]
     Active Substance: CYANOCOBALAMIN
     Indication: Supplementation therapy
  32. CYANOCOBALAMIN [Concomitant]
     Active Substance: CYANOCOBALAMIN
  33. FOLIC ACID [Concomitant]
     Active Substance: FOLIC ACID
     Indication: Folate deficiency
  34. FOLIC ACID [Concomitant]
     Active Substance: FOLIC ACID
     Indication: Anaemia
  35. MIDODRINE [Concomitant]
     Active Substance: MIDODRINE
     Indication: Hypotension
  36. FLOMAX [Concomitant]
     Active Substance: TAMSULOSIN HYDROCHLORIDE
     Indication: Benign prostatic hyperplasia
  37. TORSEMIDE [Concomitant]
     Active Substance: TORSEMIDE
     Indication: Cardiac failure congestive
     Dosage: ADJUSTING DOSE TO 120 MG -BID
  38. TORSEMIDE [Concomitant]
     Active Substance: TORSEMIDE
     Indication: Oedema
  39. TYLENOL [Concomitant]
     Active Substance: ACETAMINOPHEN
     Indication: Pain
     Dosage: PRN
  40. ULORIC [Concomitant]
     Active Substance: FEBUXOSTAT
     Indication: Rheumatoid arthritis
  41. ULORIC [Concomitant]
     Active Substance: FEBUXOSTAT
     Indication: Polymyalgia rheumatica
  42. ULORIC [Concomitant]
     Active Substance: FEBUXOSTAT
     Indication: Giant cell arteritis

REACTIONS (5)
  - Weight decreased [Unknown]
  - Renal disorder [Unknown]
  - Pulmonary oedema [Unknown]
  - Contusion [Unknown]
  - Haemorrhage [Unknown]

NARRATIVE: CASE EVENT DATE: 20241201
